FAERS Safety Report 17064857 (Version 5)
Quarter: 2021Q1

REPORT INFORMATION
  Report Type: Report from Study
  Country: CA (occurrence: CA)
  Receive Date: 20191122
  Receipt Date: 20210105
  Transmission Date: 20210419
  Serious: Yes (Other)
  Sender: FDA-Public Use
  Company Number: CA-JNJFOC-20190827902

PATIENT
  Age: 39 Year
  Sex: Female
  Weight: 55 kg

DRUGS (4)
  1. REMICADE [Suspect]
     Active Substance: INFLIXIMAB
     Route: 042
  2. REMICADE [Suspect]
     Active Substance: INFLIXIMAB
     Indication: CROHN^S DISEASE
     Route: 042
     Dates: start: 2006
  3. PLAQUENIL                          /00072602/ [Suspect]
     Active Substance: HYDROXYCHLOROQUINE DIPHOSPHATE
     Indication: PLATELET COUNT INCREASED
     Dosage: DOSE DOUBLED IN JAN?2020
     Route: 048
     Dates: start: 202001
  4. REMICADE [Suspect]
     Active Substance: INFLIXIMAB
     Route: 042
     Dates: start: 2006

REACTIONS (7)
  - Intestinal polyp [Recovered/Resolved]
  - Gastritis [Unknown]
  - Pain [Unknown]
  - Headache [Unknown]
  - Systemic lupus erythematosus [Recovering/Resolving]
  - Platelet count increased [Unknown]
  - Nausea [Unknown]

NARRATIVE: CASE EVENT DATE: 201908
